FAERS Safety Report 20852816 (Version 1)
Quarter: 2022Q2

REPORT INFORMATION
  Report Type: Other
  Country: US (occurrence: None)
  Receive Date: 20220520
  Receipt Date: 20220520
  Transmission Date: 20220721
  Serious: Yes (Other)
  Sender: FDA-Public Use
  Company Number: US-ROCHE-3099292

PATIENT
  Sex: Female

DRUGS (4)
  1. GAVRETO [Suspect]
     Active Substance: PRALSETINIB
     Indication: Metastases to lung
     Dosage: TAKE 4 CAPSULE(S) BY MOUTH ONCE DAILY ON AN EMPTY STOMACH (1 HOUR BEFORE EATING OR 2 HOURS AFTER)
     Route: 048
  2. GAVRETO [Suspect]
     Active Substance: PRALSETINIB
     Indication: Lung neoplasm malignant
  3. GAVRETO [Suspect]
     Active Substance: PRALSETINIB
     Indication: Metastases to bone
  4. GAVRETO [Suspect]
     Active Substance: PRALSETINIB
     Indication: Metastases to central nervous system

REACTIONS (1)
  - Metastatic neoplasm [Unknown]
